FAERS Safety Report 6004142-9 (Version None)
Quarter: 2008Q4

REPORT INFORMATION
  Report Type: 
  Country: None (occurrence: None)
  Receive Date: 20081215
  Receipt Date: 20081215
  Transmission Date: 20090506
  Serious: Yes (Other)
  Sender: FDA-Public Use
  Company Number: None

PATIENT
  Age: 10 Year
  Sex: Female
  Weight: 26.3086 kg

DRUGS (1)
  1. LAMOTRIGENE 100 MG TEVA [Suspect]
     Indication: COMPLEX PARTIAL SEIZURES
     Dosage: 100 MG TWICE DAILY PO
     Route: 048
     Dates: start: 20080801, end: 20080929

REACTIONS (5)
  - CONVULSION [None]
  - HEADACHE [None]
  - MEMORY IMPAIRMENT [None]
  - PRODUCT QUALITY ISSUE [None]
  - STARING [None]
